FAERS Safety Report 6218931-9 (Version None)
Quarter: 2009Q2

REPORT INFORMATION
  Report Type: 
  Country: None (occurrence: None)
  Receive Date: 20090608
  Receipt Date: 20090528
  Transmission Date: 20091009
  Serious: Yes (Hospitalization, Other)
  Sender: FDA-Public Use
  Company Number: GB-AMGEN-QUU341169

PATIENT
  Sex: Female
  Weight: 634 kg

DRUGS (4)
  1. NEULASTA [Suspect]
     Indication: CHEMOTHERAPY
     Route: 058
     Dates: start: 20090327, end: 20090327
  2. FLUOROURACIL [Suspect]
     Route: 042
     Dates: start: 20090326, end: 20090326
  3. EPIRUBICIN [Suspect]
     Route: 042
     Dates: start: 20090326, end: 20090326
  4. CYCLOPHOSPHAMIDE [Suspect]
     Route: 042
     Dates: start: 20090326, end: 20090326

REACTIONS (6)
  - ABDOMINAL PAIN [None]
  - BLOOD PRESSURE DECREASED [None]
  - BODY TEMPERATURE INCREASED [None]
  - FEBRILE NEUTROPENIA [None]
  - HAEMOGLOBIN DECREASED [None]
  - TACHYCARDIA [None]
